FAERS Safety Report 25840476 (Version 1)
Quarter: 2025Q3

REPORT INFORMATION
  Report Type: Spontaneous
  Country: CN (occurrence: CN)
  Receive Date: 20250924
  Receipt Date: 20250924
  Transmission Date: 20251020
  Serious: Yes (Other)
  Sender: Kenvue
  Company Number: CN-KENVUE-20250910145

PATIENT

DRUGS (1)
  1. ACETAMINOPHEN [Suspect]
     Active Substance: ACETAMINOPHEN
     Indication: Body temperature abnormal
     Dosage: 0.65 GRAM, THRICE A DAY
     Route: 048
     Dates: start: 20250711

REACTIONS (2)
  - Incorrect product administration duration [Unknown]
  - Hepatic function abnormal [Recovering/Resolving]

NARRATIVE: CASE EVENT DATE: 20250711
